FAERS Safety Report 9167474 (Version 2)
Quarter: 2013Q1

REPORT INFORMATION
  Report Type: Spontaneous
  Country: SI (occurrence: None)
  Receive Date: 20130305
  Receipt Date: 20130319
  Transmission Date: 20140127
  Serious: Yes (Other)
  Sender: FDA-Public Use
  Company Number: FK201300692

PATIENT
  Age: 58 Year
  Sex: Female

DRUGS (6)
  1. PACLITAXEL [Suspect]
     Indication: MALIGNANT PERITONEAL NEOPLASM
     Dosage: 260 MG, INTRAVENOUS
     Route: 042
     Dates: start: 20130204, end: 20130204
  2. CARBOPLATIN (CARBOPLATIN) [Concomitant]
  3. DEXMETHASONE (DEXAMETHASONE) [Concomitant]
  4. RANITAL (RANITIDINE) [Concomitant]
  5. EUTIROX (LEVOTHYROXINE) [Concomitant]
  6. NOLPAZA (PANTOPRAZOLE) [Concomitant]

REACTIONS (3)
  - Laryngeal oedema [None]
  - Throat irritation [None]
  - Ear pruritus [None]
